FAERS Safety Report 9674593 (Version 1)
Quarter: 2013Q4

REPORT INFORMATION
  Report Type: Spontaneous
  Country: US (occurrence: None)
  Receive Date: 20131106
  Receipt Date: 20131106
  Transmission Date: 20140711
  Serious: Yes (Disabling)
  Sender: FDA-Public Use
  Company Number: None

PATIENT
  Age: 53 Year
  Sex: Female
  Weight: 54.89 kg

DRUGS (7)
  1. KENALOG [Suspect]
     Indication: HYPERSENSITIVITY
  2. KENALOG [Suspect]
     Indication: RHINORRHOEA
  3. MORPHINE [Concomitant]
  4. CLONIPIN [Concomitant]
  5. OXCODONE [Concomitant]
  6. MULTI VIT [Concomitant]
  7. CALCIUM [Concomitant]

REACTIONS (11)
  - Injection site atrophy [None]
  - Glucose tolerance impaired [None]
  - Nerve injury [None]
  - Skin atrophy [None]
  - Feeling abnormal [None]
  - Dizziness [None]
  - Weight decreased [None]
  - Malaise [None]
  - Hypoaesthesia [None]
  - Hypoaesthesia [None]
  - Hypoaesthesia [None]
